FAERS Safety Report 14384690 (Version 1)
Quarter: 2018Q1

REPORT INFORMATION
  Report Type: Report from Study
  Country: AR (occurrence: AR)
  Receive Date: 20180115
  Receipt Date: 20180115
  Transmission Date: 20180509
  Serious: Yes (Hospitalization)
  Sender: FDA-Public Use
  Company Number: AR-EMD SERONO-E2B_90002774

PATIENT
  Age: 43 Year
  Sex: Female

DRUGS (6)
  1. ATENOLOL. [Concomitant]
     Active Substance: ATENOLOL
     Indication: PRODUCT USED FOR UNKNOWN INDICATION
  2. REBIF [Suspect]
     Active Substance: INTERFERON BETA-1A
     Indication: MULTIPLE SCLEROSIS
     Dates: start: 20171110
  3. APIDRA HUMAN INSULIN [Concomitant]
     Indication: TYPE 1 DIABETES MELLITUS
  4. INSULIN DETEMIR [Concomitant]
     Active Substance: INSULIN DETEMIR
     Indication: TYPE 1 DIABETES MELLITUS
  5. REBIF [Suspect]
     Active Substance: INTERFERON BETA-1A
     Route: 058
     Dates: end: 20171215
  6. LEVOTHYROXINE. [Concomitant]
     Active Substance: LEVOTHYROXINE
     Indication: HYPOTHYROIDISM

REACTIONS (8)
  - Headache [Unknown]
  - Nausea [Unknown]
  - Myalgia [Unknown]
  - Vomiting [Unknown]
  - Fatigue [Unknown]
  - Chest pain [Recovering/Resolving]
  - Vertigo [Unknown]
  - Muscular weakness [Unknown]

NARRATIVE: CASE EVENT DATE: 201712
